FAERS Safety Report 26214072 (Version 1)
Quarter: 2025Q4

REPORT INFORMATION
  Report Type: Spontaneous
  Country: US (occurrence: US)
  Receive Date: 20251230
  Receipt Date: 20251230
  Transmission Date: 20260118
  Serious: Yes (Life-Threatening, Hospitalization, Other)
  Sender: CIPLA
  Company Number: US-CIPLA LTD.-2025US16507

PATIENT

DRUGS (2)
  1. WARFARIN [Interacting]
     Active Substance: WARFARIN
     Indication: Atrial fibrillation
     Dosage: UNK
     Route: 065
  2. AZITHROMYCIN [Interacting]
     Active Substance: AZITHROMYCIN
     Indication: Pneumonia
     Dosage: UNK
     Route: 065

REACTIONS (4)
  - Cardiac tamponade [Recovered/Resolved]
  - International normalised ratio increased [Recovered/Resolved]
  - Drug interaction [Unknown]
  - Pericardial haemorrhage [Recovered/Resolved]
